FAERS Safety Report 6665690-1 (Version None)
Quarter: 2010Q2

REPORT INFORMATION
  Report Type: 
  Country: None (occurrence: None)
  Receive Date: 20100402
  Receipt Date: 20100330
  Transmission Date: 20101027
  Serious: Yes (Hospitalization)
  Sender: FDA-Public Use
  Company Number: US-ELI_LILLY_AND_COMPANY-US201002000817

PATIENT
  Sex: Female
  Weight: 70.295 kg

DRUGS (12)
  1. BYETTA [Suspect]
     Indication: TYPE 2 DIABETES MELLITUS
     Dosage: 5 UG, 2/D
     Route: 058
     Dates: start: 20091001, end: 20091101
  2. BYETTA [Suspect]
     Dosage: 5 UG, 2/D
     Route: 058
     Dates: start: 20100201, end: 20100301
  3. BYETTA [Suspect]
     Dosage: 10 UG, 2/D
     Route: 058
     Dates: start: 20100301
  4. BUMETANIDE [Concomitant]
     Indication: CARDIAC FAILURE CONGESTIVE
     Dosage: 2 MG, UNK
  5. TRAMADOL HCL [Concomitant]
     Dosage: 25 MG, AS NEEDED
  6. DIOVAN [Concomitant]
     Indication: CARDIAC FAILURE CONGESTIVE
     Dosage: 160 MG, DAILY (1/D)
  7. MULTI-VITAMIN [Concomitant]
     Dosage: UNK, DAILY (1/D)
  8. CIDER VINEGAR [Concomitant]
  9. GLUCOSAMINE/CHONDROITIN /01625901/ [Concomitant]
  10. MAGNESIUM [Concomitant]
     Dosage: 225 MG, 2/D
  11. POTASSIUM                          /00031402/ [Concomitant]
     Dosage: 20 MEQ, DAILY (1/D)
  12. NIACIN [Concomitant]
     Dosage: 50 MG, 3/D

REACTIONS (13)
  - BLOOD GLUCOSE DECREASED [None]
  - BLOOD GLUCOSE INCREASED [None]
  - BREAST CYST [None]
  - BREAST INFECTION [None]
  - CARDIAC PACEMAKER BATTERY REPLACEMENT [None]
  - CHROMATOPSIA [None]
  - FATIGUE [None]
  - HUNGER [None]
  - HYPERHIDROSIS [None]
  - LETHARGY [None]
  - NERVOUSNESS [None]
  - OPEN WOUND [None]
  - WEIGHT INCREASED [None]
